FAERS Safety Report 8241757-1 (Version None)
Quarter: 2012Q1

REPORT INFORMATION
  Report Type: 
  Country: None (occurrence: None)
  Receive Date: 20120328
  Receipt Date: 20120321
  Transmission Date: 20120608
  Serious: Yes (Other)
  Sender: FDA-Public Use
  Company Number: US-MERCK-1110USA01936

PATIENT
  Sex: Female

DRUGS (3)
  1. FOSAMAX [Suspect]
     Indication: OSTEOPENIA
     Route: 065
  2. RECLAST [Concomitant]
     Route: 065
  3. ALENDRONATE SODIUM [Suspect]
     Indication: OSTEOPENIA
     Route: 065

REACTIONS (2)
  - FEMUR FRACTURE [None]
  - BONE DISORDER [None]
